FAERS Safety Report 11300699 (Version 5)
Quarter: 2015Q4

REPORT INFORMATION
  Report Type: Report from Study
  Country: US (occurrence: None)
  Receive Date: 20150722
  Receipt Date: 20151012
  Transmission Date: 20160304
  Serious: Yes (Other)
  Sender: FDA-Public Use
  Company Number: ADR-2015-01364

PATIENT
  Age: 43 Year
  Sex: Female

DRUGS (2)
  1. LIORESAL [Suspect]
     Active Substance: BACLOFEN
     Indication: MUSCLE SPASTICITY
     Dosage: 340.9 MCG/DAY
  2. BACLOFEN ORAL [Suspect]
     Active Substance: BACLOFEN
     Indication: MUSCLE SPASTICITY

REACTIONS (18)
  - Feeling drunk [None]
  - Clonus [None]
  - Headache [None]
  - Hallucination [None]
  - Device occlusion [None]
  - Cerebrovascular accident [None]
  - Muscle rigidity [None]
  - Drug withdrawal syndrome [None]
  - Body temperature increased [None]
  - Device kink [None]
  - Pyrexia [None]
  - Muscle spasticity [None]
  - Paraesthesia oral [None]
  - Paraesthesia [None]
  - Hypertonia [None]
  - Pruritus [None]
  - Wound complication [None]
  - Muscle tightness [None]
